FAERS Safety Report 10238096 (Version 2)
Quarter: 2016Q2

REPORT INFORMATION
  Report Type: Report from Study
  Country: FR (occurrence: FR)
  Receive Date: 20140616
  Receipt Date: 20160615
  Transmission Date: 20160815
  Serious: Yes (Hospitalization)
  Sender: FDA-Public Use
  Company Number: FR-ROCHE-1418558

PATIENT
  Age: 13 Year
  Sex: Male

DRUGS (2)
  1. SOMATROPIN [Suspect]
     Active Substance: SOMATROPIN
     Indication: PSEUDOHYPOPARATHYROIDISM
  2. SOMATROPIN [Suspect]
     Active Substance: SOMATROPIN
     Indication: GROWTH HORMONE DEFICIENCY
     Dosage: 10MG/2ML
     Route: 058
     Dates: start: 20080221

REACTIONS (3)
  - Adenoidal hypertrophy [Recovered/Resolved]
  - Sleep apnoea syndrome [Recovered/Resolved]
  - Nasal septum disorder [Recovered/Resolved]

NARRATIVE: CASE EVENT DATE: 201403
